FAERS Safety Report 6682270-2 (Version None)
Quarter: 2010Q2

REPORT INFORMATION
  Report Type: 
  Country: None (occurrence: None)
  Receive Date: 20100414
  Receipt Date: 20100414
  Transmission Date: 20101027
  Serious: Yes (Other)
  Sender: FDA-Public Use
  Company Number: None

PATIENT
  Age: 43 Year
  Sex: Female
  Weight: 75.6 kg

DRUGS (2)
  1. PRIVIGEN [Suspect]
     Indication: BRACHIAL PLEXOPATHY
     Dosage: 30 GRAMS DAILY FOR 5 DAYS DAILY IV
     Route: 042
     Dates: start: 20100329, end: 20100402
  2. PRIVIGEN [Suspect]
     Indication: CHRONIC INFLAMMATORY DEMYELINATING POLYRADICULONEUROPATHY
     Dosage: 30 GRAMS DAILY FOR 5 DAYS DAILY IV
     Route: 042
     Dates: start: 20100329, end: 20100402

REACTIONS (6)
  - CHROMATURIA [None]
  - FLANK PAIN [None]
  - HAEMOLYSIS [None]
  - HEADACHE [None]
  - PYREXIA [None]
  - RETICULOCYTOSIS [None]
